FAERS Safety Report 5302752-5 (Version None)
Quarter: 2007Q2

REPORT INFORMATION
  Report Type: 
  Country: None (occurrence: None)
  Receive Date: 20070419
  Receipt Date: 20070410
  Transmission Date: 20071010
  Serious: Yes (Other)
  Sender: FDA-Public Use
  Company Number: GB-PFIZER INC-2007030066

PATIENT
  Sex: Male

DRUGS (3)
  1. LIPITOR [Suspect]
  2. CRESTOR [Suspect]
  3. ACETYLSALICYLIC ACID SRT [Concomitant]

REACTIONS (4)
  - CHEST PAIN [None]
  - DIABETES MELLITUS [None]
  - FATIGUE [None]
  - PAIN [None]
